FAERS Safety Report 4931886-X (Version None)
Quarter: 2006Q1

REPORT INFORMATION
  Report Type: 
  Country: None (occurrence: None)
  Receive Date: 20060303
  Receipt Date: 20051104
  Transmission Date: 20060701
  Serious: Yes (Hospitalization)
  Sender: FDA-Public Use
  Company Number: US-MERCK-0511USA01058

PATIENT
  Age: 59 Year
  Sex: Male
  Weight: 75 kg

DRUGS (1)
  1. VIOXX [Suspect]
     Indication: ARTHRITIS
     Route: 048
     Dates: start: 20000101, end: 20010101

REACTIONS (6)
  - ANORECTAL DISORDER [None]
  - BLOOD CHOLESTEROL INCREASED [None]
  - BLOOD TRIGLYCERIDES INCREASED [None]
  - HYPERTENSION [None]
  - MYOCARDIAL INFARCTION [None]
  - PNEUMONIA [None]
